APPROVED DRUG PRODUCT: FLUMADINE
Active Ingredient: RIMANTADINE HYDROCHLORIDE
Strength: 50MG/5ML
Dosage Form/Route: SYRUP;ORAL
Application: N019650 | Product #001
Applicant: FOREST LABORATORIES INC
Approved: Sep 17, 1993 | RLD: No | RS: No | Type: DISCN